FAERS Safety Report 17201879 (Version 1)
Quarter: 2020Q1

REPORT INFORMATION
  Report Type: Spontaneous
  Country: US (occurrence: US)
  Receive Date: 20191224
  Receipt Date: 20191224
  Transmission Date: 20200409
  Serious: Yes (Life-Threatening, Other)
  Sender: FDA-Public Use
  Company Number: None

PATIENT
  Age: 21 Year
  Sex: Male
  Weight: 78.75 kg

DRUGS (3)
  1. ATROVENT [Concomitant]
     Active Substance: IPRATROPIUM BROMIDE
  2. DULOXETINE HCL DR 30 MG CAP COMMON BRAND(S): CYMBALTA [Suspect]
     Active Substance: DULOXETINE HYDROCHLORIDE
     Indication: DEPRESSION
     Dosage: ?          QUANTITY:1 CAPSULE(S);?
     Route: 048
     Dates: start: 20191218, end: 20191218
  3. ALBUTEROL. [Concomitant]
     Active Substance: ALBUTEROL

REACTIONS (7)
  - Vomiting [None]
  - Sensation of foreign body [None]
  - Nausea [None]
  - Hypersensitivity [None]
  - Pruritus [None]
  - Diarrhoea [None]
  - Anaphylactic reaction [None]

NARRATIVE: CASE EVENT DATE: 20191219
